FAERS Safety Report 19501481 (Version 2)
Quarter: 2021Q3

REPORT INFORMATION
  Report Type: Spontaneous
  Country: US (occurrence: US)
  Receive Date: 20210707
  Receipt Date: 20210729
  Transmission Date: 20211014
  Serious: No
  Sender: FDA-Public Use
  Company Number: US-LEADINGPHARMA-US-2021LEASPO00210

PATIENT
  Age: 53 Year
  Sex: Female
  Weight: 175 kg

DRUGS (4)
  1. LORAZEPAM TABLETS USP [Suspect]
     Active Substance: LORAZEPAM
     Indication: SEIZURE
  2. ATENOLOL. [Concomitant]
     Active Substance: ATENOLOL
     Indication: BLOOD PRESSURE MEASUREMENT
     Route: 065
  3. BENAZEPRIL [Concomitant]
     Active Substance: BENAZEPRIL HYDROCHLORIDE
     Indication: BLOOD PRESSURE MEASUREMENT
     Route: 065
  4. LORAZEPAM TABLETS USP [Suspect]
     Active Substance: LORAZEPAM
     Indication: PANIC DISORDER
     Route: 048
     Dates: start: 2019

REACTIONS (5)
  - Epileptic aura [Unknown]
  - Product use in unapproved indication [Unknown]
  - Somnolence [Unknown]
  - Product substitution issue [Unknown]
  - Therapeutic product effect delayed [Unknown]
